FAERS Safety Report 11924610 (Version 2)
Quarter: 2016Q1

REPORT INFORMATION
  Report Type: Spontaneous
  Country: US (occurrence: US)
  Receive Date: 20160118
  Receipt Date: 20160317
  Transmission Date: 20160526
  Serious: No
  Sender: FDA-Public Use
  Company Number: US-GLAXOSMITHKLINE-US2016004618

PATIENT
  Age: 59 Year
  Sex: Male

DRUGS (10)
  1. FLOVENT DISKUS [Suspect]
     Active Substance: FLUTICASONE PROPIONATE
     Indication: RESPIRATORY TRACT CONGESTION
     Dosage: 1 PUFF(S), BID
     Route: 055
     Dates: start: 20160104
  2. GABAPENTIN. [Concomitant]
     Active Substance: GABAPENTIN
  3. GALANTAMINE. [Concomitant]
     Active Substance: GALANTAMINE
  4. PANTOPRAZOLE [Concomitant]
     Active Substance: PANTOPRAZOLE SODIUM
  5. DOXEPIN [Concomitant]
     Active Substance: DOXEPIN
  6. JANUMET [Concomitant]
     Active Substance: METFORMIN HYDROCHLORIDE\SITAGLIPTIN PHOSPHATE
  7. LORATADINE. [Concomitant]
     Active Substance: LORATADINE
  8. VALSARTAN. [Concomitant]
     Active Substance: VALSARTAN
  9. AMLODIPINE [Concomitant]
     Active Substance: AMLODIPINE BESYLATE
  10. PAROXETINE [Concomitant]
     Active Substance: PAROXETINE\PAROXETINE HYDROCHLORIDE

REACTIONS (3)
  - Product quality issue [Unknown]
  - Drug ineffective [Unknown]
  - Extra dose administered [Unknown]

NARRATIVE: CASE EVENT DATE: 20160106
